FAERS Safety Report 15401782 (Version 4)
Quarter: 2019Q3

REPORT INFORMATION
  Report Type: Spontaneous
  Country: DE (occurrence: DE)
  Receive Date: 20180919
  Receipt Date: 20190927
  Transmission Date: 20191004
  Serious: Yes (Life-Threatening, Other)
  Sender: FDA-Public Use
  Company Number: PHHY2018DE102116

PATIENT
  Age: 78 Year
  Sex: Male

DRUGS (2)
  1. LOCOL (FLUVASTATIN SODIUM) [Suspect]
     Active Substance: FLUVASTATIN SODIUM
     Indication: HYPERCHOLESTEROLAEMIA
     Dosage: 20 MG, QD
     Route: 048
     Dates: start: 2007
  2. LOCOL (FLUVASTATIN SODIUM) [Suspect]
     Active Substance: FLUVASTATIN SODIUM
     Dosage: 80 MG, QD
     Route: 048
     Dates: end: 2017

REACTIONS (8)
  - Renal disorder [Recovering/Resolving]
  - Acute myocardial infarction [Recovering/Resolving]
  - Drug ineffective [Recovering/Resolving]
  - Arrhythmia [Recovering/Resolving]
  - Extrasystoles [Recovering/Resolving]
  - Vascular stent stenosis [Recovering/Resolving]
  - Myocardial infarction [Unknown]
  - Vascular stent thrombosis [Recovering/Resolving]

NARRATIVE: CASE EVENT DATE: 2014
